FAERS Safety Report 23306817 (Version 1)
Quarter: 2023Q4

REPORT INFORMATION
  Report Type: Spontaneous
  Country: US (occurrence: US)
  Receive Date: 20231218
  Receipt Date: 20231218
  Transmission Date: 20240109
  Serious: No
  Sender: FDA-Public Use
  Company Number: US-RECKITT BENCKISER HEALTHCARE INT LIMITED-RB-103735-2022

PATIENT
  Age: 88 Year
  Sex: Male

DRUGS (1)
  1. DELSYM [Suspect]
     Active Substance: DEXTROMETHORPHAN
     Indication: Cough
     Dosage: 20 MILLILITER, UNKNOWN
     Route: 048
     Dates: start: 20221031

REACTIONS (1)
  - Confusional state [Not Recovered/Not Resolved]
